FAERS Safety Report 10788412 (Version 1)
Quarter: 2015Q1

REPORT INFORMATION
  Report Type: Spontaneous
  Country: FR (occurrence: FR)
  Receive Date: 20150212
  Receipt Date: 20150212
  Transmission Date: 20150721
  Serious: Yes (Death, Life-Threatening, Hospitalization)
  Sender: FDA-Public Use
  Company Number: FR-EUSA PHARMA-2015-FR-001597

PATIENT

DRUGS (11)
  1. ERWINASE [Suspect]
     Active Substance: ASPARAGINASE ERWINIA CHRYSANTHEMI
     Indication: ANGIOCENTRIC LYMPHOMA
     Dosage: 34040 MG, QOD
     Route: 042
     Dates: start: 20141001, end: 20141016
  2. ERWINASE [Suspect]
     Active Substance: ASPARAGINASE ERWINIA CHRYSANTHEMI
     Dosage: UNK
     Dates: start: 20141028
  3. CANCIDAS [Concomitant]
     Active Substance: CASPOFUNGIN ACETATE
     Dosage: UNK, SINGLE
     Route: 048
     Dates: start: 20140929, end: 20141008
  4. ONDANSETRON [Concomitant]
     Active Substance: ONDANSETRON
     Dosage: 8 MG, SINGLE
     Route: 042
     Dates: start: 20140927, end: 20140927
  5. MESNA. [Concomitant]
     Active Substance: MESNA
     Dosage: 8400 MG, UNK
     Route: 042
     Dates: start: 20140927, end: 20140928
  6. IFOSFAMIDE. [Concomitant]
     Active Substance: IFOSFAMIDE
     Dosage: 8400 MG, SINGLE
     Route: 042
     Dates: start: 20140927, end: 20140927
  7. APREPITANT. [Concomitant]
     Active Substance: APREPITANT
     Dosage: 125 MG, UNK
     Route: 042
     Dates: start: 20140928, end: 20140928
  8. ZELITREX [Concomitant]
     Active Substance: VALACYCLOVIR HYDROCHLORIDE
     Dosage: 500 MG, BID
     Route: 048
     Dates: start: 20141004, end: 20141011
  9. GEMZAR [Concomitant]
     Active Substance: GEMCITABINE HYDROCHLORIDE
     Dosage: 1672 MG, SINGLE
     Route: 042
     Dates: start: 20140927, end: 20140927
  10. OXALIPLATIN. [Concomitant]
     Active Substance: OXALIPLATIN
     Dosage: 145 MG, SINGLE
     Route: 042
     Dates: start: 20140927, end: 20140927
  11. DEXAMETHASONE. [Suspect]
     Active Substance: DEXAMETHASONE
     Indication: ANGIOCENTRIC LYMPHOMA
     Dosage: 80 MG, QOD
     Route: 048
     Dates: start: 20141001, end: 20141016

REACTIONS (3)
  - Hyperglycaemia [Recovered/Resolved]
  - Diabetic hyperosmolar coma [Recovered/Resolved]
  - Hepatic failure [Fatal]

NARRATIVE: CASE EVENT DATE: 201410
